FAERS Safety Report 6440223-3 (Version None)
Quarter: 2009Q4

REPORT INFORMATION
  Report Type: 
  Country: None (occurrence: None)
  Receive Date: 20091112
  Receipt Date: 20091112
  Transmission Date: 20100525
  Serious: Yes (Hospitalization)
  Sender: FDA-Public Use
  Company Number: None

PATIENT
  Age: 48 Year
  Sex: Female
  Weight: 64 kg

DRUGS (4)
  1. PIPERACILLIN AND TAZOBACTAM [Suspect]
     Indication: EVIDENCE BASED TREATMENT
     Dosage: 3.375G EVERY 8 HOURS IV DRIP
     Route: 041
     Dates: start: 20091029, end: 20091103
  2. PIPERACILLIN AND TAZOBACTAM [Suspect]
     Indication: PNEUMONIA
     Dosage: 3.375G EVERY 8 HOURS IV DRIP
     Route: 041
     Dates: start: 20091029, end: 20091103
  3. VANCOMYCIN [Concomitant]
  4. ZOSYN [Concomitant]

REACTIONS (1)
  - PLATELET COUNT DECREASED [None]
